FAERS Safety Report 8288987-0 (Version None)
Quarter: 2012Q2

REPORT INFORMATION
  Report Type: 
  Country: None (occurrence: None)
  Receive Date: 20120412
  Receipt Date: 20120410
  Transmission Date: 20120825
  Serious: Yes (Hospitalization, Other)
  Sender: FDA-Public Use
  Company Number: ADR-2010-9208

PATIENT
  Sex: Female

DRUGS (1)
  1. LIORESAL [Suspect]
     Indication: MUSCLE SPASTICITY
     Dosage: 2000 MCG/ML AT A RATE OF 523.8 MCG/DAY,

REACTIONS (12)
  - CONVULSION [None]
  - WITHDRAWAL SYNDROME [None]
  - MUSCLE SPASMS [None]
  - DEVICE LEAKAGE [None]
  - OVERDOSE [None]
  - FALL [None]
  - DYSTONIA [None]
  - MALAISE [None]
  - DISEASE PROGRESSION [None]
  - MEDICAL DEVICE COMPLICATION [None]
  - UNDERDOSE [None]
  - INCORRECT DOSE ADMINISTERED [None]
